FAERS Safety Report 4396103-0 (Version None)
Quarter: 2004Q2

REPORT INFORMATION
  Report Type: 
  Country: None (occurrence: None)
  Receive Date: 20040621
  Receipt Date: 20031121
  Transmission Date: 20050107
  Serious: Yes (Death)
  Sender: FDA-Public Use
  Company Number: USA-2003-0011033

PATIENT
  Age: 15 Year
  Sex: Male
  Weight: 56.7 kg

DRUGS (4)
  1. OXYCONTIN [Suspect]
     Dosage: MG
  2. NICOTINE [Suspect]
     Dosage: MG
  3. CITALOPRAM (CITALOPRAM) [Suspect]
     Dosage: MG
  4. CANNABINOIDS [Suspect]
     Dosage: MG

REACTIONS (1)
  - ACCIDENTAL OVERDOSE [None]
